FAERS Safety Report 9516401 (Version 2)
Quarter: 2014Q1

REPORT INFORMATION
  Report Type: Report from Study
  Country: JP (occurrence: JP)
  Receive Date: 20130911
  Receipt Date: 20140325
  Transmission Date: 20141002
  Serious: Yes (Hospitalization)
  Sender: FDA-Public Use
  Company Number: JP-JNJFOC-20130904484

PATIENT
  Age: 67 Year
  Sex: Male
  Weight: 65 kg

DRUGS (10)
  1. SIMPONI [Suspect]
     Indication: RHEUMATOID ARTHRITIS
     Route: 058
     Dates: start: 20120421, end: 20120421
  2. LIPIDIL [Concomitant]
     Indication: HYPERLIPIDAEMIA
     Route: 048
  3. ONEALFA [Concomitant]
     Indication: OSTEOPOROSIS PROPHYLAXIS
     Route: 048
  4. PYDOXAL [Concomitant]
     Indication: ANTIBIOTIC PROPHYLAXIS
     Route: 048
  5. ISCOTIN [Concomitant]
     Indication: ANTIBIOTIC PROPHYLAXIS
     Route: 048
  6. METHOTREXATE [Concomitant]
     Indication: RHEUMATOID ARTHRITIS
     Route: 065
     Dates: start: 20120421
  7. FOLIAMIN [Concomitant]
     Indication: PROPHYLAXIS
     Route: 048
  8. VITAMIN B1 [Concomitant]
     Indication: PROPHYLAXIS
     Route: 065
  9. VITAMIN B2 [Concomitant]
     Indication: PROPHYLAXIS
     Route: 065
  10. VITAMIN C [Concomitant]
     Indication: PROPHYLAXIS
     Route: 065

REACTIONS (1)
  - Pneumonia [Recovered/Resolved]
